FAERS Safety Report 4854147-6 (Version None)
Quarter: 2005Q4

REPORT INFORMATION
  Report Type: 
  Country: None (occurrence: None)
  Receive Date: 20051125
  Receipt Date: 20050509
  Transmission Date: 20060501
  Serious: Yes (Hospitalization)
  Sender: FDA-Public Use
  Company Number: US-JNJFOC-20050502830

PATIENT
  Age: 74 Year
  Sex: Female

DRUGS (1)
  1. LEVAQUIN [Suspect]
     Indication: INFECTION
     Dosage: 1 IN 1 DAY, ORAL
     Route: 048
     Dates: start: 20050501

REACTIONS (3)
  - ELECTROCARDIOGRAM QT PROLONGED [None]
  - PULMONARY OEDEMA [None]
  - VENTRICULAR TACHYCARDIA [None]
